FAERS Safety Report 16509858 (Version 1)
Quarter: 2019Q3

REPORT INFORMATION
  Report Type: Spontaneous
  Country: US (occurrence: US)
  Receive Date: 20190701
  Receipt Date: 20190701
  Transmission Date: 20191004
  Serious: No
  Sender: FDA-Public Use
  Company Number: US-JNJFOC-20190633302

PATIENT
  Age: 13 Year
  Sex: Male

DRUGS (1)
  1. RISPERDAL [Suspect]
     Active Substance: RISPERIDONE
     Indication: AFFECTIVE DISORDER
     Dosage: VARYING DOSES OF 1 MG, 1.5 MG, 2 MG, 3 MG AT VARYING FREQUENCIES
     Route: 048

REACTIONS (4)
  - Blood prolactin increased [Unknown]
  - Breast enlargement [Unknown]
  - Product used for unknown indication [Unknown]
  - Off label use [Unknown]

NARRATIVE: CASE EVENT DATE: 20140328
